FAERS Safety Report 14125508 (Version 1)
Quarter: 2017Q4

REPORT INFORMATION
  Report Type: Spontaneous
  Country: BE (occurrence: BE)
  Receive Date: 20171025
  Receipt Date: 20171025
  Transmission Date: 20180321
  Serious: Yes (Hospitalization)
  Sender: FDA-Public Use
  Company Number: BE-OTSUKA-2017_022983

PATIENT
  Sex: Female

DRUGS (1)
  1. ABILIFY MAINTENA [Suspect]
     Active Substance: ARIPIPRAZOLE
     Indication: PRODUCT USED FOR UNKNOWN INDICATION
     Dosage: UNK
     Route: 065
     Dates: start: 201709

REACTIONS (3)
  - Delusion [Not Recovered/Not Resolved]
  - Therapeutic response shortened [Unknown]
  - Condition aggravated [Unknown]

NARRATIVE: CASE EVENT DATE: 2017
